FAERS Safety Report 25500331 (Version 1)
Quarter: 2025Q2

REPORT INFORMATION
  Report Type: Spontaneous
  Country: US (occurrence: None)
  Receive Date: 20250628
  Receipt Date: 20250628
  Transmission Date: 20250716
  Serious: Yes (Other)
  Sender: FDA-CTU
  Company Number: None

PATIENT
  Sex: Female

DRUGS (1)
  1. MONISTAT 3 [Suspect]
     Active Substance: MICONAZOLE NITRATE

REACTIONS (3)
  - Fungal infection [None]
  - Condition aggravated [None]
  - Chemical burn [None]

NARRATIVE: CASE EVENT DATE: 20250628
